FAERS Safety Report 5428690-5 (Version None)
Quarter: 2007Q3

REPORT INFORMATION
  Report Type: 
  Country: None (occurrence: None)
  Receive Date: 20070828
  Receipt Date: 20070822
  Transmission Date: 20080115
  Serious: Yes (Death)
  Sender: FDA-Public Use
  Company Number: BG-SHR-BG-2007-015750

PATIENT
  Age: 73 Year
  Sex: Female

DRUGS (5)
  1. FLUDARABINE PHOSPHATE [Suspect]
     Dosage: UNK, UNK
     Route: 042
     Dates: start: 20060918, end: 20070206
  2. CAMPATH [Suspect]
     Dosage: 3 MG, 1 DOSE
     Route: 042
     Dates: start: 20060913, end: 20060913
  3. CAMPATH [Suspect]
     Dosage: 10 MG, 1 DOSE
     Dates: start: 20060914, end: 20060914
  4. CAMPATH [Suspect]
     Dosage: 30 MG, 1 DOSE
     Route: 042
     Dates: start: 20060915, end: 20060915
  5. CAMPATH [Suspect]
     Dates: start: 20060918, end: 20070206

REACTIONS (1)
  - SUDDEN DEATH [None]
